FAERS Safety Report 5726423-6 (Version None)
Quarter: 2008Q2

REPORT INFORMATION
  Report Type: 
  Country: None (occurrence: None)
  Receive Date: 20080502
  Receipt Date: 20080424
  Transmission Date: 20081010
  Serious: Yes (Other)
  Sender: FDA-Public Use
  Company Number: B0360279A

PATIENT
  Sex: Male

DRUGS (10)
  1. PAROXETINE HCL [Suspect]
     Route: 065
     Dates: start: 19991124, end: 20040101
  2. ASPIRIN [Concomitant]
  3. LISINOPRIL [Concomitant]
  4. LANTUS [Concomitant]
  5. HUMULIN R [Concomitant]
  6. LEVOBUNOLOL HCL [Concomitant]
  7. TADALAFIL [Concomitant]
  8. PRAVASTATIN [Concomitant]
  9. SILDENAFIL CITRATE [Concomitant]
  10. FLUVASTATIN [Concomitant]

REACTIONS (18)
  - AGITATION [None]
  - ANXIETY [None]
  - CONFUSIONAL STATE [None]
  - DIARRHOEA [None]
  - DISTURBANCE IN ATTENTION [None]
  - DIZZINESS [None]
  - DRUG WITHDRAWAL SYNDROME [None]
  - FATIGUE [None]
  - HYPERHIDROSIS [None]
  - INFLUENZA LIKE ILLNESS [None]
  - MEMORY IMPAIRMENT [None]
  - NAUSEA [None]
  - OBSESSIVE-COMPULSIVE DISORDER [None]
  - PARANOIA [None]
  - SLEEP DISORDER [None]
  - SUICIDAL IDEATION [None]
  - TREMOR [None]
  - WITHDRAWAL SYNDROME [None]
